FAERS Safety Report 5399827-1 (Version None)
Quarter: 2007Q3

REPORT INFORMATION
  Report Type: 
  Country: None (occurrence: None)
  Receive Date: 20070730
  Receipt Date: 20070724
  Transmission Date: 20080115
  Serious: Yes (Death, Other)
  Sender: FDA-Public Use
  Company Number: PHHO2005FR03966

PATIENT
  Age: 71 Year
  Sex: Female
  Weight: 54 kg

DRUGS (6)
  1. TAMOXIFEN CITRATE [Suspect]
     Indication: BREAST CANCER
     Dosage: UNK, UNK
     Route: 048
     Dates: start: 20020606
  2. HYDROXYZINE [Concomitant]
  3. ANTITUSSIVES [Concomitant]
  4. DIURETICS [Concomitant]
  5. BRONCHODILATORS [Concomitant]
  6. TELMISARTAN [Concomitant]
     Indication: HYPERTENSION
     Dosage: UNK, UNK

REACTIONS (8)
  - ASTHENIA [None]
  - COUGH [None]
  - HYPERTENSION [None]
  - HYPOTENSION [None]
  - INFLUENZA LIKE ILLNESS [None]
  - OEDEMA PERIPHERAL [None]
  - SUDDEN DEATH [None]
  - TACHYCARDIA [None]
